FAERS Safety Report 24414832 (Version 2)
Quarter: 2024Q4

REPORT INFORMATION
  Report Type: Spontaneous
  Country: US (occurrence: US)
  Receive Date: 20241009
  Receipt Date: 20241104
  Transmission Date: 20250115
  Serious: Yes (Life-Threatening, Hospitalization)
  Sender: TEVA
  Company Number: US-TEVA-VS-3251072

PATIENT
  Age: 62 Year
  Sex: Male

DRUGS (5)
  1. EPINEPHRINE [Suspect]
     Active Substance: EPINEPHRINE
     Indication: Distributive shock
     Dosage: EPINEPHRINE
     Route: 065
  2. METFORMIN [Suspect]
     Active Substance: METFORMIN HYDROCHLORIDE
     Indication: Diabetes mellitus
     Route: 065
  3. ANGIOTENSIN II [Suspect]
     Active Substance: ANGIOTENSIN II
     Indication: Distributive shock
     Dosage: DOSAGE: 65 NG/KG
     Route: 065
  4. VASOPRESSIN [Suspect]
     Active Substance: VASOPRESSIN
     Indication: Distributive shock
     Route: 065
  5. NOREPINEPHRINE [Suspect]
     Active Substance: NOREPINEPHRINE\NOREPINEPHRINE BITARTRATE
     Indication: Distributive shock
     Route: 065

REACTIONS (4)
  - Lactic acidosis [Recovering/Resolving]
  - Respiratory failure [Recovering/Resolving]
  - Distributive shock [Recovering/Resolving]
  - Drug ineffective [Unknown]
